FAERS Safety Report 12536696 (Version 1)
Quarter: 2016Q3

REPORT INFORMATION
  Report Type: Spontaneous
  Country: BR (occurrence: BR)
  Receive Date: 20160707
  Receipt Date: 20160707
  Transmission Date: 20161109
  Serious: Yes (Hospitalization)
  Sender: FDA-Public Use
  Company Number: BR-B.I. PHARMACEUTICALS,INC./RIDGEFIELD-2016-BI-43188BR

PATIENT
  Age: 74 Year
  Sex: Male
  Weight: 55 kg

DRUGS (2)
  1. ROTIGOTINE [Suspect]
     Active Substance: ROTIGOTINE
     Indication: PARKINSON^S DISEASE
     Dosage: 4 MG
     Route: 062
     Dates: start: 20160616, end: 20160619
  2. SIFROL [Suspect]
     Active Substance: PRAMIPEXOLE
     Indication: PARKINSON^S DISEASE
     Dosage: 0.125 MG
     Route: 048
     Dates: start: 20160613, end: 20160613

REACTIONS (6)
  - Agitation [Recovered/Resolved]
  - Hallucination [Recovered/Resolved]
  - Confusional state [Recovered/Resolved]
  - Insomnia [Recovered/Resolved]
  - Balance disorder [Recovered/Resolved]
  - Syncope [Recovered/Resolved]

NARRATIVE: CASE EVENT DATE: 20160613
